FAERS Safety Report 8785218 (Version 1)
Quarter: 2012Q4

REPORT INFORMATION
  Report Type: Report from Study
  Country: US (occurrence: US)
  Receive Date: 20120914
  Receipt Date: 20120914
  Transmission Date: 20130627
  Serious: Yes (Other)
  Sender: FDA-Public Use
  Company Number: US-ABBOTT-12P-163-0977413-00

PATIENT
  Age: 65 Year
  Sex: Male

DRUGS (1)
  1. HUMIRA PRE-FILLED SYRINGE [Suspect]
     Indication: RHEUMATOID ARTHRITIS
     Route: 058
     Dates: start: 20120518, end: 20120905

REACTIONS (5)
  - Prostate cancer [Unknown]
  - Muscular weakness [Unknown]
  - Myalgia [Unknown]
  - Nocturia [Unknown]
  - Urinary incontinence [Unknown]
